FAERS Safety Report 10375285 (Version 1)
Quarter: 2014Q3

REPORT INFORMATION
  Report Type: Spontaneous
  Country: US (occurrence: None)
  Receive Date: 20140808
  Receipt Date: 20140808
  Transmission Date: 20150326
  Serious: Yes (Disabling)
  Sender: FDA-Public Use
  Company Number: None

PATIENT
  Age: 70 Year
  Sex: Male
  Weight: 54.43 kg

DRUGS (1)
  1. TRAMADOL [Suspect]
     Active Substance: TRAMADOL
     Indication: CERVICAL RADICULOPATHY
     Dosage: 1 PILL
     Route: 048
     Dates: start: 20140716, end: 20140720

REACTIONS (3)
  - Blood pressure increased [None]
  - Dyspnoea [None]
  - Electrocardiogram abnormal [None]

NARRATIVE: CASE EVENT DATE: 20140720
